FAERS Safety Report 17868797 (Version 3)
Quarter: 2020Q3

REPORT INFORMATION
  Report Type: Report from Study
  Country: CA (occurrence: CA)
  Receive Date: 20200607
  Receipt Date: 20200701
  Transmission Date: 20201103
  Serious: Yes (Other)
  Sender: FDA-Public Use
  Company Number: CA-BIOGEN-2020BI00868873

PATIENT
  Age: 31 Year
  Sex: Female

DRUGS (1)
  1. TYSABRI [Suspect]
     Active Substance: NATALIZUMAB
     Indication: MULTIPLE SCLEROSIS
     Dosage: INFUSED FOR OVER 1 HOUR
     Route: 042
     Dates: start: 20200331

REACTIONS (13)
  - Oropharyngeal pain [Not Recovered/Not Resolved]
  - Somnolence [Unknown]
  - Multiple sclerosis relapse [Not Recovered/Not Resolved]
  - Oropharyngeal discomfort [Recovered/Resolved]
  - Mobility decreased [Not Recovered/Not Resolved]
  - Chills [Recovered/Resolved]
  - Gait disturbance [Recovered/Resolved]
  - Yawning [Recovered/Resolved]
  - Emotional disorder [Recovered/Resolved]
  - Urticaria [Recovered/Resolved]
  - Hypoaesthesia [Not Recovered/Not Resolved]
  - Herpes zoster [Not Recovered/Not Resolved]
  - Diplegia [Unknown]

NARRATIVE: CASE EVENT DATE: 20200331
